FAERS Safety Report 6150167-2 (Version None)
Quarter: 2009Q2

REPORT INFORMATION
  Report Type: 
  Country: None (occurrence: None)
  Receive Date: 20090409
  Receipt Date: 20090331
  Transmission Date: 20091009
  Serious: Yes (Other)
  Sender: FDA-Public Use
  Company Number: PFIZER INC-2006087895

PATIENT
  Sex: Female
  Weight: 73 kg

DRUGS (9)
  1. PROVERA [Suspect]
     Indication: HORMONE REPLACEMENT THERAPY
     Dosage: UNK
     Route: 048
     Dates: start: 19890101, end: 19950101
  2. PROVERA [Suspect]
     Indication: MENOPAUSAL SYMPTOMS
  3. PREMARIN [Suspect]
     Indication: HORMONE REPLACEMENT THERAPY
     Dosage: UNK
     Route: 065
     Dates: start: 19890101, end: 19950101
  4. PREMARIN [Suspect]
     Indication: MENOPAUSAL SYMPTOMS
  5. PREMPRO [Suspect]
     Indication: HORMONE REPLACEMENT THERAPY
     Dosage: UNK
     Route: 065
     Dates: start: 19950101, end: 20010101
  6. PREMPRO [Suspect]
     Indication: MENOPAUSAL SYMPTOMS
  7. COREG [Concomitant]
     Indication: CARDIAC DISORDER
     Dosage: UNK
     Dates: start: 19920101
  8. ZESTORETIC [Concomitant]
     Indication: BLOOD PRESSURE
     Dosage: UNK
     Dates: start: 19920101
  9. ZESTORETIC [Concomitant]
     Indication: DIURETIC THERAPY

REACTIONS (1)
  - BREAST CANCER FEMALE [None]
